FAERS Safety Report 22143002 (Version 4)
Quarter: 2023Q2

REPORT INFORMATION
  Report Type: Report from Study
  Country: BR (occurrence: BR)
  Receive Date: 20230327
  Receipt Date: 20230408
  Transmission Date: 20230722
  Serious: Yes (Other)
  Sender: FDA-Public Use
  Company Number: BR-002147023-NVSC2023BR066872

PATIENT
  Sex: Male
  Weight: 82 kg

DRUGS (2)
  1. COSENTYX [Suspect]
     Active Substance: SECUKINUMAB
     Indication: Ankylosing spondylitis
     Dosage: UNK
     Route: 065
  2. COSENTYX [Suspect]
     Active Substance: SECUKINUMAB
     Indication: Spondylitis

REACTIONS (9)
  - Ankylosing spondylitis [Unknown]
  - Uveitis [Unknown]
  - Spinal disorder [Not Recovered/Not Resolved]
  - Pain [Unknown]
  - Swelling [Not Recovered/Not Resolved]
  - Inflammation [Not Recovered/Not Resolved]
  - Muscle tightness [Unknown]
  - Sacral pain [Not Recovered/Not Resolved]
  - Therapeutic product effect incomplete [Not Recovered/Not Resolved]
